FAERS Safety Report 5778053-8 (Version None)
Quarter: 2008Q2

REPORT INFORMATION
  Report Type: 
  Country: None (occurrence: None)
  Receive Date: 20080617
  Receipt Date: 20080617
  Transmission Date: 20081010
  Serious: Yes (Life-Threatening, Other)
  Sender: FDA-Public Use
  Company Number: None

PATIENT
  Age: 30 Year
  Sex: Male
  Weight: 96.1626 kg

DRUGS (2)
  1. ANTABUSE [Suspect]
     Dosage: 250 3 TIMES WEEKLY PO
     Route: 048
     Dates: start: 20031011, end: 20080616
  2. ANTABUSE [Concomitant]

REACTIONS (1)
  - UNEVALUABLE EVENT [None]
